FAERS Safety Report 13558800 (Version 1)
Quarter: 2017Q2

REPORT INFORMATION
  Report Type: Spontaneous
  Country: DE (occurrence: US)
  Receive Date: 20170518
  Receipt Date: 20170518
  Transmission Date: 20170830
  Serious: Yes (Other)
  Sender: FDA-Public Use
  Company Number: DE-AMNEAL PHARMACEUTICALS-2017AMN00617

PATIENT
  Age: 8 Day
  Sex: Female

DRUGS (1)
  1. LIDOCAINE. [Suspect]
     Active Substance: LIDOCAINE
     Indication: CONVULSION NEONATAL
     Dosage: AFTER A BOLUS OF 6MG/KG WITHIN 20 MIN, 4MG/KG/HOUR ON DAY 8 AND WITHDRAWN AFTER 24 HOURS
     Route: 041

REACTIONS (5)
  - PO2 decreased [Recovered/Resolved]
  - Methaemoglobinaemia [Recovered/Resolved]
  - Tachypnoea [Recovered/Resolved]
  - Cyanosis [Recovered/Resolved]
  - Respiratory distress [Recovered/Resolved]
